FAERS Safety Report 5207439-5 (Version None)
Quarter: 2007Q1

REPORT INFORMATION
  Report Type: 
  Country: None (occurrence: None)
  Receive Date: 20070112
  Receipt Date: 20070102
  Transmission Date: 20070707
  Serious: Yes (Disabling, Congenital Anomaly)
  Sender: FDA-Public Use
  Company Number: FR-ABBOTT-07P-056-0354686-00

PATIENT
  Age: 1 Day
  Sex: Male

DRUGS (2)
  1. DEPAKENE [Suspect]
     Indication: DRUG EXPOSURE DURING PREGNANCY
     Route: 065
  2. DEPAKENE [Suspect]

REACTIONS (5)
  - DEVELOPMENTAL DELAY [None]
  - HYPOTONIA NEONATAL [None]
  - PHONOLOGICAL DISORDER [None]
  - POSTURE ABNORMAL [None]
  - SPEECH DISORDER DEVELOPMENTAL [None]
